FAERS Safety Report 6892401-7 (Version None)
Quarter: 2010Q3

REPORT INFORMATION
  Report Type: 
  Country: None (occurrence: None)
  Receive Date: 20100731
  Receipt Date: 20080513
  Transmission Date: 20110219
  Serious: Yes (Other)
  Sender: FDA-Public Use
  Company Number: US-PFIZER INC-2008042212

PATIENT
  Sex: Female
  Weight: 83.9 kg

DRUGS (6)
  1. NEURONTIN [Suspect]
     Indication: PERIPHERAL ARTERIAL OCCLUSIVE DISEASE
     Dates: start: 20070101
  2. PLAVIX [Concomitant]
  3. ACETYLSALICYLIC ACID SRT [Concomitant]
  4. PREVACID [Concomitant]
  5. EFFEXOR [Concomitant]
  6. XANAX [Concomitant]

REACTIONS (4)
  - BALANCE DISORDER [None]
  - FALL [None]
  - SCRATCH [None]
  - SOMNOLENCE [None]
